FAERS Safety Report 6709350-7 (Version None)
Quarter: 2010Q2

REPORT INFORMATION
  Report Type: 
  Country: None (occurrence: None)
  Receive Date: 20100503
  Receipt Date: 20100503
  Transmission Date: 20101027
  Serious: No
  Sender: FDA-Public Use
  Company Number: None

PATIENT
  Age: 7 Year
  Sex: Female
  Weight: 35.3806 kg

DRUGS (1)
  1. CHILDREN'S MOTRIN [Suspect]
     Indication: PYREXIA
     Dosage: 2 TSP ONCE PO
     Route: 048
     Dates: start: 20100429, end: 20100429

REACTIONS (2)
  - PRODUCT QUALITY ISSUE [None]
  - RASH [None]
